FAERS Safety Report 8246695-6 (Version None)
Quarter: 2012Q1

REPORT INFORMATION
  Report Type: 
  Country: None (occurrence: None)
  Receive Date: 20120315
  Receipt Date: 20120307
  Transmission Date: 20120608
  Serious: Yes (Other)
  Sender: FDA-Public Use
  Company Number: 2012031333

PATIENT
  Age: 58 Year
  Sex: Female

DRUGS (1)
  1. PRIVIGEN [Suspect]
     Indication: POLYNEUROPATHY
     Dosage: 2G/KG ON 48H;17 VIALS
     Route: 042
     Dates: start: 20120207, end: 20120209

REACTIONS (2)
  - HTLV-1 TEST POSITIVE [None]
  - HTLV-2 TEST POSITIVE [None]
